FAERS Safety Report 25058513 (Version 2)
Quarter: 2025Q3

REPORT INFORMATION
  Report Type: Report from Study
  Country: US (occurrence: US)
  Receive Date: 20250310
  Receipt Date: 20250810
  Transmission Date: 20251020
  Serious: Yes (Other)
  Sender: ALEXION PHARMACEUTICALS
  Company Number: US-AstraZeneca-CH-00819245A

PATIENT
  Age: 42 Year
  Sex: Female
  Weight: 67.574 kg

DRUGS (1)
  1. TEZEPELUMAB [Suspect]
     Active Substance: TEZEPELUMAB
     Indication: Asthma
     Dosage: 210 MILLIGRAM, Q4W

REACTIONS (12)
  - Laboratory test abnormal [Unknown]
  - Pulmonary function test abnormal [Unknown]
  - Total lung capacity decreased [Unknown]
  - Rhinitis allergic [Unknown]
  - Bronchiectasis [Unknown]
  - Asthma [Unknown]
  - COVID-19 [Unknown]
  - Blood immunoglobulin E [Unknown]
  - Eosinophil count [Unknown]
  - Chronic obstructive pulmonary disease [Unknown]
  - Chronic obstructive pulmonary disease [Unknown]
  - Obstructive airways disorder [Unknown]

NARRATIVE: CASE EVENT DATE: 20220603
